FAERS Safety Report 24060650 (Version 1)
Quarter: 2024Q3

REPORT INFORMATION
  Report Type: Spontaneous
  Country: US (occurrence: US)
  Receive Date: 20240708
  Receipt Date: 20240708
  Transmission Date: 20241016
  Serious: Yes (Life-Threatening, Hospitalization, Other)
  Sender: EPIC PHARM
  Company Number: US-EPICPHARMA-US-2024EPCLIT00796

PATIENT
  Age: 67 Year
  Sex: Male

DRUGS (4)
  1. LORAZEPAM [Suspect]
     Active Substance: LORAZEPAM
     Indication: Psychomotor hyperactivity
     Route: 042
  2. CHLORDIAZEPOXIDE [Suspect]
     Active Substance: CHLORDIAZEPOXIDE
     Indication: Psychomotor hyperactivity
     Route: 065
  3. CHLORDIAZEPOXIDE [Suspect]
     Active Substance: CHLORDIAZEPOXIDE
     Indication: Hypertension
  4. CHLORDIAZEPOXIDE [Suspect]
     Active Substance: CHLORDIAZEPOXIDE
     Indication: Sinus tachycardia

REACTIONS (3)
  - Depressed level of consciousness [Recovered/Resolved]
  - Respiratory depression [Recovered/Resolved]
  - Product use in unapproved indication [Unknown]
